FAERS Safety Report 6568502-X (Version None)
Quarter: 2010Q1

REPORT INFORMATION
  Report Type: 
  Country: None (occurrence: None)
  Receive Date: 20100203
  Receipt Date: 20100127
  Transmission Date: 20100710
  Serious: Yes (Hospitalization)
  Sender: FDA-Public Use
  Company Number: B0630508A

PATIENT
  Age: 33 Year
  Sex: Female

DRUGS (2)
  1. LAMICTAL [Suspect]
     Indication: DRUG USE FOR UNKNOWN INDICATION
     Route: 065
  2. FLUOXETINE [Concomitant]

REACTIONS (15)
  - ABASIA [None]
  - ABNORMAL BEHAVIOUR [None]
  - COORDINATION ABNORMAL [None]
  - DISABILITY [None]
  - DIZZINESS [None]
  - DYSSTASIA [None]
  - EYE DISORDER [None]
  - LOSS OF CONSCIOUSNESS [None]
  - NERVOUS SYSTEM DISORDER [None]
  - OVERDOSE [None]
  - PARALYSIS [None]
  - PHOTOPHOBIA [None]
  - SENSORY DISTURBANCE [None]
  - TENSION [None]
  - VOMITING [None]
